FAERS Safety Report 8578352 (Version 2)
Quarter: 2012Q4

REPORT INFORMATION
  Report Type: Report from Study
  Country: FR (occurrence: FR)
  Receive Date: 20120524
  Receipt Date: 20121008
  Transmission Date: 20130627
  Serious: Yes (Hospitalization)
  Sender: FDA-Public Use
  Company Number: FR-ROCHE-1069532

PATIENT
  Age: 57 Year
  Sex: Male
  Weight: 77.5 kg

DRUGS (7)
  1. MABTHERA [Suspect]
     Indication: MANTLE CELL LYMPHOMA
     Dosage: 712mg per cycle
     Route: 042
     Dates: start: 20120426
  2. CYTARABINE [Concomitant]
     Route: 042
     Dates: start: 20120423
  3. CYTARABINE [Concomitant]
     Route: 042
     Dates: start: 20120424
  4. CARBOPLATIN [Concomitant]
     Dosage: 640mg/cycle
     Route: 065
     Dates: start: 20120424
  5. METHYLPREDNISOLONE [Concomitant]
     Route: 042
     Dates: start: 20120423
  6. METHYLPREDNISOLONE [Concomitant]
     Route: 042
     Dates: start: 20120424
  7. PREDNISONE [Concomitant]
     Route: 048
     Dates: start: 20120425, end: 20120427

REACTIONS (1)
  - Pulmonary embolism [Recovered/Resolved]
